APPROVED DRUG PRODUCT: SODIUM CHLORIDE 23.4% IN PLASTIC CONTAINER
Active Ingredient: SODIUM CHLORIDE
Strength: 234MG/ML **Federal Register determination that product was not discontinued or withdrawn for safety or effectiveness reasons**
Dosage Form/Route: INJECTABLE;INJECTION
Application: N019329 | Product #001
Applicant: ABRAXIS PHARMACEUTICAL PRODUCTS
Approved: Apr 22, 1987 | RLD: Yes | RS: No | Type: DISCN